FAERS Safety Report 9004483 (Version 2)
Quarter: 2013Q1

REPORT INFORMATION
  Report Type: Report from Study
  Country: CA (occurrence: CA)
  Receive Date: 20130108
  Receipt Date: 20130111
  Transmission Date: 20140127
  Serious: Yes (Other)
  Sender: FDA-Public Use
  Company Number: CA-ROCHE-1071938

PATIENT
  Sex: Male

DRUGS (4)
  1. VEMURAFENIB [Suspect]
     Indication: METASTATIC MALIGNANT MELANOMA
     Route: 048
     Dates: start: 20120512, end: 20120522
  2. VEMURAFENIB [Suspect]
     Route: 048
     Dates: start: 20120611
  3. VEMURAFENIB [Suspect]
     Route: 048
     Dates: start: 20121129, end: 20130103
  4. CELEBREX [Concomitant]
     Indication: MALIGNANT MELANOMA
     Route: 065
     Dates: start: 20120412

REACTIONS (4)
  - Rash generalised [Not Recovered/Not Resolved]
  - General physical health deterioration [Unknown]
  - Disease progression [Not Recovered/Not Resolved]
  - Drug effect decreased [Unknown]
